FAERS Safety Report 9187653 (Version 2)
Quarter: 2015Q2

REPORT INFORMATION
  Report Type: Spontaneous
  Country: NL (occurrence: NL)
  Receive Date: 20130325
  Receipt Date: 20150415
  Transmission Date: 20150821
  Serious: Yes (Hospitalization, Other)
  Sender: FDA-Public Use
  Company Number: PHHY2013NL026812

PATIENT
  Age: 53 Year
  Sex: Female

DRUGS (4)
  1. CITALOPRAM [Suspect]
     Active Substance: CITALOPRAM HYDROBROMIDE
     Indication: PRODUCT USED FOR UNKNOWN INDICATION
     Route: 065
  2. AMITRIPTYLINE [Suspect]
     Active Substance: AMITRIPTYLINE
     Indication: PRODUCT USED FOR UNKNOWN INDICATION
     Route: 065
  3. LORAZEPAM. [Concomitant]
     Active Substance: LORAZEPAM
     Indication: DEPRESSION
     Route: 065
  4. VENLAFAXINE [Suspect]
     Active Substance: VENLAFAXINE HYDROCHLORIDE
     Indication: DEPRESSION
     Route: 065

REACTIONS (9)
  - Depressed level of consciousness [Unknown]
  - Blood pressure decreased [Recovered/Resolved]
  - Drug level increased [Recovered/Resolved]
  - Heart rate decreased [Recovered/Resolved]
  - Toxicity to various agents [Unknown]
  - Cardiac output decreased [Recovered/Resolved]
  - Haemodynamic instability [Unknown]
  - Respiratory acidosis [Unknown]
  - Overdose [Unknown]
